FAERS Safety Report 8145409-8 (Version None)
Quarter: 2012Q1

REPORT INFORMATION
  Report Type: 
  Country: None (occurrence: None)
  Receive Date: 20120217
  Receipt Date: 20120214
  Transmission Date: 20120608
  Serious: Yes (Other)
  Sender: FDA-Public Use
  Company Number: US-PFIZER INC-2012041041

PATIENT
  Sex: Female

DRUGS (2)
  1. XANAX [Suspect]
     Indication: ANXIETY
     Dosage: UNK
  2. ZOLOFT [Suspect]
     Indication: DEPRESSION
     Dosage: UNK

REACTIONS (7)
  - HYPOAESTHESIA [None]
  - ANXIETY [None]
  - EMOTIONAL POVERTY [None]
  - LOSS OF CONSCIOUSNESS [None]
  - SOMNOLENCE [None]
  - VOMITING [None]
  - GASTRIC PH DECREASED [None]
